FAERS Safety Report 24314206 (Version 1)
Quarter: 2024Q3

REPORT INFORMATION
  Report Type: Spontaneous
  Country: US (occurrence: US)
  Receive Date: 20240912
  Receipt Date: 20240912
  Transmission Date: 20241016
  Serious: No
  Sender: BAUSCH AND LOMB
  Company Number: US-BAUSCHBL-2024BNL032774

PATIENT
  Age: 60 Year
  Sex: Male

DRUGS (1)
  1. DEXAMETHASONE\NEOMYCIN\POLYMYXIN B SULFATE [Suspect]
     Active Substance: DEXAMETHASONE\NEOMYCIN\POLYMYXIN B SULFATE
     Indication: Eye inflammation
     Route: 047
     Dates: start: 20240830

REACTIONS (4)
  - Burning sensation [Unknown]
  - Pain [Unknown]
  - Patient dissatisfaction with treatment [Unknown]
  - Expired product administered [Unknown]

NARRATIVE: CASE EVENT DATE: 20240801
